FAERS Safety Report 9422162 (Version 2)
Quarter: 2014Q1

REPORT INFORMATION
  Report Type: Spontaneous
  Country: US (occurrence: US)
  Receive Date: 20130726
  Receipt Date: 20140321
  Transmission Date: 20141002
  Serious: Yes (Hospitalization)
  Sender: FDA-Public Use
  Company Number: US-B.I. PHARMACEUTICALS,INC./RIDGEFIELD-2013-BI-21806BP

PATIENT
  Sex: Female
  Weight: 41.73 kg

DRUGS (9)
  1. PRADAXA [Suspect]
     Indication: ATRIAL FIBRILLATION
     Dosage: 300 MG
     Route: 065
     Dates: start: 20110318, end: 20110802
  2. ASPIRIN [Concomitant]
     Dosage: 81 MG
     Route: 065
  3. IBUPROFEN [Concomitant]
     Route: 065
  4. DILTIAZEM [Concomitant]
     Dosage: 120 MG
     Route: 065
  5. METOPROLOL [Concomitant]
     Dosage: 100 MG
     Route: 065
  6. LOVASTATIN [Concomitant]
     Dosage: 20 MG
     Route: 065
  7. OMEPRAZOLE [Concomitant]
     Dosage: 40 MG
     Route: 065
  8. MULTIVITAMINS [Concomitant]
     Route: 065
  9. SPIRIVA [Concomitant]
     Dosage: 18 MCG
     Route: 065

REACTIONS (7)
  - Gastrointestinal haemorrhage [Unknown]
  - Anaemia [Unknown]
  - Coagulopathy [Unknown]
  - Renal failure acute [Unknown]
  - Epistaxis [Unknown]
  - Lip haemorrhage [Unknown]
  - Shock haemorrhagic [Unknown]
